FAERS Safety Report 15641701 (Version 1)
Quarter: 2018Q4

REPORT INFORMATION
  Report Type: Spontaneous
  Country: US (occurrence: US)
  Receive Date: 20181121
  Receipt Date: 20181121
  Transmission Date: 20190205
  Serious: No
  Sender: FDA-Public Use
  Company Number: US-ACCORD-072776

PATIENT
  Age: 62 Year
  Sex: Female
  Weight: 90.72 kg

DRUGS (1)
  1. HYDROCHLOROTHIAZIDE. [Suspect]
     Active Substance: HYDROCHLOROTHIAZIDE
     Indication: BLOOD PRESSURE ABNORMAL
     Dosage: QD FROM 2-3 YEARS
     Route: 048

REACTIONS (3)
  - Fluid retention [Not Recovered/Not Resolved]
  - Swelling [Not Recovered/Not Resolved]
  - Chest pain [Not Recovered/Not Resolved]
